FAERS Safety Report 6700065-8 (Version None)
Quarter: 2010Q2

REPORT INFORMATION
  Report Type: 
  Country: None (occurrence: None)
  Receive Date: 20100427
  Receipt Date: 20100427
  Transmission Date: 20101027
  Serious: No
  Sender: FDA-Public Use
  Company Number: None

PATIENT
  Sex: Male
  Weight: 62.3 kg

DRUGS (1)
  1. COTRIM [Suspect]
     Indication: ABSCESS
     Dosage: 1 TABLET BID PO
     Route: 048
     Dates: start: 20100227, end: 20100312

REACTIONS (9)
  - ALANINE AMINOTRANSFERASE INCREASED [None]
  - CHILLS [None]
  - DRUG RASH WITH EOSINOPHILIA AND SYSTEMIC SYMPTOMS [None]
  - DYSPNOEA [None]
  - HEADACHE [None]
  - OROPHARYNGEAL PAIN [None]
  - PAIN [None]
  - PYREXIA [None]
  - SWELLING FACE [None]
